FAERS Safety Report 20712413 (Version 2)
Quarter: 2022Q2

REPORT INFORMATION
  Report Type: Spontaneous
  Country: US (occurrence: JP)
  Receive Date: 20220415
  Receipt Date: 20220427
  Transmission Date: 20220721
  Serious: Yes (Death, Other)
  Sender: FDA-Public Use
  Company Number: US-AUROBINDO-AUR-APL-2022-012165

PATIENT
  Age: 50 Year
  Sex: Female

DRUGS (8)
  1. MELPHALAN [Suspect]
     Active Substance: MELPHALAN
     Indication: Acute myeloid leukaemia
     Dosage: 40MG/M , ONCE A DAY
     Route: 065
  2. MITOXANTRONE [Suspect]
     Active Substance: MITOXANTRONE HYDROCHLORIDE
     Indication: Acute myeloid leukaemia
     Dosage: 8 MG/M, ONCE A DAY
     Route: 065
  3. ETOPOSIDE [Suspect]
     Active Substance: ETOPOSIDE
     Indication: Acute myeloid leukaemia
     Dosage: 100 MG/M, ONCE A DAY
     Route: 065
  4. CYTARABINE [Suspect]
     Active Substance: CYTARABINE
     Indication: Acute myeloid leukaemia
     Dosage: 100 MG/M, ONCE A DAY
     Route: 065
  5. CYTARABINE [Suspect]
     Active Substance: CYTARABINE
     Dosage: 1 G/M, ONCE A DAY
     Route: 065
  6. BUSULFAN [Suspect]
     Active Substance: BUSULFAN
     Indication: Acute myeloid leukaemia
     Dosage: 3.2 MILLIGRAM/KILOGRAM, ONCE A DAY
     Route: 065
  7. DAUNORUBICIN [Suspect]
     Active Substance: DAUNORUBICIN
     Indication: Acute myeloid leukaemia
     Dosage: 50 MG/M , ONCE A DAY
     Route: 065
  8. FLUDARABINE [Suspect]
     Active Substance: FLUDARABINE PHOSPHATE
     Indication: Acute myeloid leukaemia
     Dosage: 30 MG/M, ONCE A DAY
     Route: 065

REACTIONS (5)
  - Acute respiratory distress syndrome [Fatal]
  - Multiple organ dysfunction syndrome [Unknown]
  - Renal failure [Unknown]
  - Cardiac failure congestive [Unknown]
  - Venoocclusive liver disease [Unknown]
